FAERS Safety Report 8536405 (Version 2)
Quarter: 2013Q2

REPORT INFORMATION
  Report Type: Spontaneous
  Country: US (occurrence: US)
  Receive Date: 20120430
  Receipt Date: 20130522
  Transmission Date: 20140414
  Serious: Yes (Death, Congenital Anomaly, Other)
  Sender: FDA-Public Use
  Company Number: US-PFIZER INC-2012104676

PATIENT
  Sex: Female

DRUGS (6)
  1. ZOLOFT [Suspect]
     Indication: DEPRESSION
     Dosage: UNK
     Route: 064
     Dates: start: 200812, end: 200903
  2. PAXIL [Suspect]
     Indication: DEPRESSION
     Dosage: UNK
     Route: 064
  3. PRENATAL VITAMINS [Concomitant]
     Dosage: UNK
     Route: 064
  4. SEROQUEL [Concomitant]
     Dosage: UNK
     Route: 064
  5. TRAZADONE [Concomitant]
     Dosage: UNK
     Route: 064
  6. AMBIEN [Concomitant]
     Dosage: UNK
     Route: 064

REACTIONS (9)
  - Maternal exposure timing unspecified [Fatal]
  - Pulmonary malformation [Fatal]
  - Congenital pulmonary hypertension [Fatal]
  - Heart disease congenital [Fatal]
  - Renal impairment [Fatal]
  - Atrial septal defect [Unknown]
  - Cerebral haemorrhage [Unknown]
  - Feeding disorder [Unknown]
  - Premature baby [Unknown]
